FAERS Safety Report 6670305-2 (Version None)
Quarter: 2010Q2

REPORT INFORMATION
  Report Type: 
  Country: None (occurrence: None)
  Receive Date: 20100406
  Receipt Date: 20100330
  Transmission Date: 20101027
  Serious: Yes (Hospitalization, Other)
  Sender: FDA-Public Use
  Company Number: US-BRISTOL-MYERS SQUIBB COMPANY-15042039

PATIENT
  Age: 18 Year
  Sex: Female
  Weight: 58 kg

DRUGS (8)
  1. SPRYCEL [Interacting]
     Indication: B PRECURSOR TYPE ACUTE LEUKAEMIA
     Dosage: LAST DOSE ON 22DEC09;60MG/M2 QD ON DAYS 1-14 AND 29-42.
     Route: 048
     Dates: start: 20091209
  2. ABILIFY [Interacting]
     Dosage: DOSE REDUCED TO 5MG QAM AND 2MG QPM.
  3. HYDROCORTISONE [Suspect]
     Indication: B PRECURSOR TYPE ACUTE LEUKAEMIA
     Dosage: LAST DOSE ON 18DEC09.
     Route: 037
     Dates: start: 20091209
  4. CYTARABINE [Suspect]
     Indication: B PRECURSOR TYPE ACUTE LEUKAEMIA
     Dosage: LAST DOSE:18DEC09;3000MG/M2 IV OVER 3HRS Q12 HRS ON DAYS 43 AND 44.
     Route: 037
     Dates: start: 20091209
  5. DAUNORUBICIN HCL [Suspect]
     Indication: B PRECURSOR TYPE ACUTE LEUKAEMIA
     Dosage: LAST DOSE:18DEC09;25MG/M2IVOVER 15MIN ON DAYS15,22;45MG/M2 ON DAYS 1,2.
     Route: 042
     Dates: start: 20091209
  6. METHOTREXATE [Suspect]
     Indication: B PRECURSOR TYPE ACUTE LEUKAEMIA
     Dosage: LAST DOSE:18DEC09;20MG/M2 QD ON DAYS 8,15,22,29,36,43 AND 50.
     Route: 037
     Dates: start: 20091209
  7. PREDNISONE [Suspect]
     Indication: B PRECURSOR TYPE ACUTE LEUKAEMIA
     Dosage: LAST DOSE:23DEC09;30MG/M2 PO BID ON DAYS 15-28.
     Route: 048
     Dates: start: 20091209
  8. VINCRISTINE SULFATE [Suspect]
     Indication: B PRECURSOR TYPE ACUTE LEUKAEMIA
     Dosage: LAST DOSE ON 18DEC09;1.5MG.M2 (MAX 2MG)IV ON DAYS 1,8 AND 15.
     Route: 042
     Dates: start: 20091209

REACTIONS (3)
  - DRUG INTERACTION [None]
  - HYPOPHOSPHATAEMIA [None]
  - PERSONALITY CHANGE [None]
